FAERS Safety Report 5667913-4 (Version None)
Quarter: 2008Q1

REPORT INFORMATION
  Report Type: 
  Country: None (occurrence: None)
  Receive Date: 20080315
  Receipt Date: 20080206
  Transmission Date: 20080703
  Serious: No
  Sender: FDA-Public Use
  Company Number: US-ABBOTT-08P-163-0437185-00

PATIENT
  Sex: Female
  Weight: 67.192 kg

DRUGS (5)
  1. HUMIRA [Suspect]
     Indication: CROHN'S DISEASE
     Route: 058
     Dates: start: 20070801, end: 20070901
  2. HUMIRA [Suspect]
     Dosage: PEN
     Route: 058
     Dates: start: 20070901
  3. HUMIRA [Suspect]
     Dates: start: 20070801
  4. AZATHIOPRINE [Concomitant]
     Indication: CROHN'S DISEASE
  5. CENTRUM SILVER [Concomitant]
     Indication: VITAMIN SUPPLEMENTATION

REACTIONS (2)
  - ABDOMINAL PAIN [None]
  - CROHN'S DISEASE [None]
